FAERS Safety Report 5616607-X (Version None)
Quarter: 2008Q1

REPORT INFORMATION
  Report Type: 
  Country: None (occurrence: None)
  Receive Date: 20080207
  Receipt Date: 20070917
  Transmission Date: 20080703
  Serious: No
  Sender: FDA-Public Use
  Company Number: A0682447A

PATIENT
  Age: 48 Year
  Sex: Male

DRUGS (2)
  1. PAXIL CR [Suspect]
     Indication: ANXIETY DISORDER
     Dosage: 50MG PER DAY
     Route: 048
     Dates: start: 20060901
  2. ALPRAZOLAM [Concomitant]

REACTIONS (7)
  - BLOOD CHOLESTEROL INCREASED [None]
  - DIZZINESS [None]
  - DREAMY STATE [None]
  - DRUG INEFFECTIVE [None]
  - FEELING ABNORMAL [None]
  - MUSCLE TWITCHING [None]
  - SEXUAL DYSFUNCTION [None]
